FAERS Safety Report 4595057-1 (Version None)
Quarter: 2005Q1

REPORT INFORMATION
  Report Type: 
  Country: None (occurrence: None)
  Receive Date: 20050223
  Receipt Date: 20050208
  Transmission Date: 20050727
  Serious: Yes (Hospitalization)
  Sender: FDA-Public Use
  Company Number: 105870ISR

PATIENT
  Age: 39 Year
  Sex: Female

DRUGS (2)
  1. METOPROLOL [Suspect]
     Indication: SUPRAVENTRICULAR TACHYCARDIA
     Dosage: ORAL
     Route: 048
     Dates: start: 20040214
  2. LIDOCAINE [Suspect]
     Indication: PERIARTHRITIS
     Dates: start: 20041112, end: 20041112

REACTIONS (8)
  - BRADYCARDIA [None]
  - CIRCULATORY COLLAPSE [None]
  - DEPRESSED LEVEL OF CONSCIOUSNESS [None]
  - DIZZINESS [None]
  - DRUG INTERACTION [None]
  - HYPOTENSION [None]
  - SHOCK [None]
  - SINUS ARREST [None]
